FAERS Safety Report 19816467 (Version 2)
Quarter: 2022Q3

REPORT INFORMATION
  Report Type: Spontaneous
  Country: IE (occurrence: IE)
  Receive Date: 20210909
  Receipt Date: 20220708
  Transmission Date: 20221027
  Serious: No
  Sender: FDA-Public Use
  Company Number: IE-LUPIN PHARMACEUTICALS INC.-2021-16748

PATIENT
  Age: 6 Decade
  Sex: Female

DRUGS (8)
  1. HYDROXYCHLOROQUINE [Suspect]
     Active Substance: HYDROXYCHLOROQUINE
     Indication: Madarosis
     Dosage: 200 MILLIGRAM, BID
     Route: 065
  2. HYDROXYCHLOROQUINE [Suspect]
     Active Substance: HYDROXYCHLOROQUINE
     Indication: Lichen planopilaris
  3. CLOBETASOL PROPIONATE [Suspect]
     Active Substance: CLOBETASOL PROPIONATE
     Indication: Madarosis
     Dosage: TAPERING CLOBETASOL (0.05%) LOTION
     Route: 061
  4. CLOBETASOL PROPIONATE [Suspect]
     Active Substance: CLOBETASOL PROPIONATE
     Indication: Lichen planopilaris
  5. BIMATOPROST [Suspect]
     Active Substance: BIMATOPROST
     Indication: Madarosis
     Dosage: UNK UNK, BID (OPHTHALMIC SOLUTION, 0.03%)
     Route: 061
  6. BIMATOPROST [Suspect]
     Active Substance: BIMATOPROST
     Indication: Lichen planopilaris
  7. MINOXIDIL [Suspect]
     Active Substance: MINOXIDIL
     Indication: Madarosis
     Dosage: UNK UNK, QD
     Route: 061
  8. MINOXIDIL [Suspect]
     Active Substance: MINOXIDIL
     Indication: Lichen planopilaris

REACTIONS (2)
  - Drug ineffective [Unknown]
  - Off label use [Unknown]
